FAERS Safety Report 4753617-9 (Version None)
Quarter: 2005Q3

REPORT INFORMATION
  Report Type: 
  Country: None (occurrence: None)
  Receive Date: 20050826
  Receipt Date: 20050512
  Transmission Date: 20060218
  Serious: No
  Sender: FDA-Public Use
  Company Number: US-GLAXOSMITHKLINE-A0558347A

PATIENT
  Age: 62 Year
  Sex: Male

DRUGS (1)
  1. BECONASE [Suspect]
     Dosage: 2SPR TWICE PER DAY
     Route: 045
     Dates: start: 20050501

REACTIONS (1)
  - PAROSMIA [None]
